FAERS Safety Report 4901372-1 (Version None)
Quarter: 2006Q1

REPORT INFORMATION
  Report Type: 
  Country: None (occurrence: None)
  Receive Date: 20060206
  Receipt Date: 20060126
  Transmission Date: 20060701
  Serious: Yes (Other)
  Sender: FDA-Public Use
  Company Number: FR-ABBOTT-06P-056-0323461-00

PATIENT
  Age: 20 Year
  Sex: Female

DRUGS (3)
  1. DIVALPROEX SODIUM [Suspect]
     Indication: DEPENDENCE
     Dosage: DOSE INCREASED
     Route: 048
  2. DIVALPROEX SODIUM [Suspect]
     Dosage: 250 MG IN THE AM, 500 MG IN THE PM
  3. METHADONE [Interacting]
     Indication: DRUG USE FOR UNKNOWN INDICATION

REACTIONS (4)
  - DEPRESSED LEVEL OF CONSCIOUSNESS [None]
  - DRUG INTERACTION [None]
  - STUPOR [None]
  - SUICIDAL IDEATION [None]
